FAERS Safety Report 9926396 (Version 1)
Quarter: 2014Q1

REPORT INFORMATION
  Report Type: Spontaneous
  Country: US (occurrence: US)
  Receive Date: 20140226
  Receipt Date: 20140226
  Transmission Date: 20141002
  Serious: No
  Sender: FDA-Public Use
  Company Number: US-AMGEN-USASP2013068032

PATIENT
  Age: 68 Year
  Sex: Female
  Weight: 65.76 kg

DRUGS (7)
  1. ENBREL [Suspect]
     Indication: PRODUCT USED FOR UNKNOWN INDICATION
     Dosage: 50 MG, QWK
     Route: 058
  2. METHOTREXATE [Concomitant]
     Dosage: 2.5 MG, UNK
     Route: 048
  3. VALACYCLOVIR [Concomitant]
     Dosage: 1 G, UNK
     Route: 048
  4. AMLODIPINE [Concomitant]
     Dosage: 10 MG, UNK
     Route: 048
  5. BABY ASPIRIN [Concomitant]
     Dosage: 81 MG, UNK
     Route: 048
  6. CALCIUM [Concomitant]
     Dosage: 500 UNK, UNK
     Route: 048
  7. GLUCOSAMINE/CHONDROITIN            /01625901/ [Concomitant]
     Dosage: UNK
     Route: 048

REACTIONS (6)
  - Injection site bruising [Unknown]
  - Injection site mass [Unknown]
  - Psoriatic arthropathy [Unknown]
  - Hypoaesthesia [Unknown]
  - Oral herpes [Unknown]
  - Injection site pain [Unknown]
